FAERS Safety Report 13423285 (Version 1)
Quarter: 2017Q2

REPORT INFORMATION
  Report Type: Spontaneous
  Country: US (occurrence: US)
  Receive Date: 20170410
  Receipt Date: 20170410
  Transmission Date: 20170830
  Serious: No
  Sender: FDA-Public Use
  Company Number: None

PATIENT
  Age: 57 Year
  Sex: Female

DRUGS (2)
  1. HARVONI [Suspect]
     Active Substance: LEDIPASVIR\SOFOSBUVIR
     Indication: INFECTION
     Route: 048
     Dates: start: 20170221, end: 20170410
  2. RIBAVIRIN TAB 200MG [Suspect]
     Active Substance: RIBAVIRIN
     Indication: INFECTION
     Dosage: 400AM 600PM BID ORAL
     Route: 048
     Dates: start: 20170221, end: 20170410

REACTIONS (1)
  - Pruritus [None]

NARRATIVE: CASE EVENT DATE: 20170221
